FAERS Safety Report 6835865-7 (Version None)
Quarter: 2010Q3

REPORT INFORMATION
  Report Type: 
  Country: None (occurrence: None)
  Receive Date: 20100713
  Receipt Date: 20100626
  Transmission Date: 20110219
  Serious: Yes (Hospitalization)
  Sender: FDA-Public Use
  Company Number: CN-JNJFOC-20100607784

PATIENT
  Age: 2 Year
  Sex: Male
  Weight: 12 kg

DRUGS (3)
  1. CHILDREN'S MOTRIN [Suspect]
     Route: 065
  2. CHILDREN'S MOTRIN [Suspect]
     Indication: PYREXIA
     Dosage: 4ML PER SERVING EIGHT TIMES FOR 3 DAYS
     Route: 065
  3. AMOXICILLIN [Suspect]
     Indication: INFLAMMATION
     Route: 065

REACTIONS (2)
  - HAEMATURIA [None]
  - LIVER FUNCTION TEST ABNORMAL [None]
